FAERS Safety Report 9969609 (Version 1)
Quarter: 2014Q1

REPORT INFORMATION
  Report Type: Report from Study
  Country: GB (occurrence: GB)
  Receive Date: 20140306
  Receipt Date: 20140306
  Transmission Date: 20141002
  Serious: Yes (Hospitalization)
  Sender: FDA-Public Use
  Company Number: GB-ROCHE-1357898

PATIENT
  Sex: Male

DRUGS (23)
  1. RITUXIMAB [Suspect]
     Indication: B-CELL LYMPHOMA
     Route: 042
     Dates: start: 20131022
  2. CYCLOPHOSPHAMIDE [Suspect]
     Indication: B-CELL LYMPHOMA
     Route: 042
     Dates: start: 20131023
  3. VINCRISTINE [Suspect]
     Indication: B-CELL LYMPHOMA
     Route: 042
     Dates: start: 20131023
  4. PREDNISONE [Suspect]
     Indication: B-CELL LYMPHOMA
     Route: 042
     Dates: start: 20131022
  5. ENOXAPARIN SODIUM [Concomitant]
  6. FUROSEMIDE [Concomitant]
  7. AMOXICILLIN SODIUM/CLAVULANATE POTASSIUM [Concomitant]
  8. ASPIRIN [Concomitant]
  9. BUDESONIDE [Concomitant]
  10. NITROGLYCERIN [Concomitant]
  11. SALBUTAMOL/SALBUTAMOL SULFATE [Concomitant]
  12. PARACETAMOL [Concomitant]
  13. CHLORPHENIRAMINE MALEATE [Concomitant]
  14. ONDANSETRON [Concomitant]
  15. OMEPRAZOLE [Concomitant]
  16. DOMPERIDONE [Concomitant]
  17. PIPERACILLIN SODIUM/SULBACTAM SODIUM [Concomitant]
  18. OXYGEN [Concomitant]
  19. SALBUTAMOL/SALBUTAMOL SULFATE [Concomitant]
  20. BISOPROLOL FUMARATE [Concomitant]
  21. ALLOPURINOL [Concomitant]
     Route: 065
  22. CLARITHROMYCIN [Concomitant]
  23. ALFUZOSIN HYDROCHLORIDE [Concomitant]

REACTIONS (1)
  - Disease progression [Unknown]
